FAERS Safety Report 4674310-7 (Version None)
Quarter: 2005Q2

REPORT INFORMATION
  Report Type: 
  Country: None (occurrence: None)
  Receive Date: 20050524
  Receipt Date: 20050506
  Transmission Date: 20051028
  Serious: Yes (Hospitalization, Other)
  Sender: FDA-Public Use
  Company Number: USA050495973

PATIENT
  Age: 79 Year
  Sex: Female

DRUGS (3)
  1. FORTEO [Suspect]
     Indication: OSTEOPOROSIS
     Dosage: 20 UG DAY
     Dates: start: 20050324
  2. MOBIC [Concomitant]
  3. OCUVITE [Concomitant]

REACTIONS (6)
  - APHASIA [None]
  - C-REACTIVE PROTEIN INCREASED [None]
  - PHARMACEUTICAL PRODUCT COMPLAINT [None]
  - RED BLOOD CELL SEDIMENTATION RATE INCREASED [None]
  - TRANSIENT ISCHAEMIC ATTACK [None]
  - URINARY TRACT INFECTION [None]
